FAERS Safety Report 8935806 (Version 1)
Quarter: 2012Q4

REPORT INFORMATION
  Report Type: 
  Country: JP (occurrence: JP)
  Receive Date: 20121130
  Receipt Date: 20121130
  Transmission Date: 20130627
  Serious: Yes (Hospitalization, Congenital Anomaly, Other)
  Sender: FDA-Public Use
  Company Number: JP-ASTELLAS-2012JP010287

PATIENT
  Age: 0 Year
  Sex: Male
  Weight: .62 kg

DRUGS (5)
  1. PROGRAF [Suspect]
     Indication: FOETAL EXPOSURE DURING PREGNANCY
     Dosage: UNK
     Route: 064
     Dates: end: 20100408
  2. AZANIN [Concomitant]
     Indication: FOETAL EXPOSURE DURING PREGNANCY
     Dosage: 50 mg, UID/QD
     Route: 064
     Dates: end: 20100408
  3. MEDROL                             /00049601/ [Concomitant]
     Indication: FOETAL EXPOSURE DURING PREGNANCY
     Dosage: 4 mg, UID/QD
     Route: 064
     Dates: end: 20100408
  4. COMELIAN [Concomitant]
     Indication: FOETAL EXPOSURE DURING PREGNANCY
     Dosage: 100 mg, tid
     Route: 064
     Dates: end: 20100408
  5. NEU-UP [Concomitant]
     Indication: NEUTROPENIA
     Dosage: 2.5 ug, UID/QD
     Route: 065
     Dates: start: 20100408, end: 20100408

REACTIONS (3)
  - Small for dates baby [Unknown]
  - Neutropenia [Recovering/Resolving]
  - Staphylococcal infection [Recovering/Resolving]
